FAERS Safety Report 23605070 (Version 4)
Quarter: 2024Q2

REPORT INFORMATION
  Report Type: Spontaneous
  Country: US (occurrence: US)
  Receive Date: 20240307
  Receipt Date: 20240506
  Transmission Date: 20240715
  Serious: No
  Sender: FDA-Public Use
  Company Number: US-PFIZER INC-202400044112

PATIENT
  Age: 14 Year
  Sex: Male

DRUGS (1)
  1. GENOTROPIN [Suspect]
     Active Substance: SOMATROPIN
     Dosage: 3.2 MG, DAILY

REACTIONS (3)
  - Poor quality device used [Unknown]
  - Device malfunction [Unknown]
  - Device defective [Unknown]
